FAERS Safety Report 5285549-4 (Version None)
Quarter: 2007Q1

REPORT INFORMATION
  Report Type: 
  Country: None (occurrence: None)
  Receive Date: 20061220
  Receipt Date: 20060313
  Transmission Date: 20070707
  Serious: Yes (Other)
  Sender: FDA-Public Use
  Company Number: 440340

PATIENT
  Age: 30 Year
  Sex: Female

DRUGS (1)
  1. TAMIFLU [Suspect]
     Indication: DRUG USE FOR UNKNOWN INDICATION
     Dosage: 1 DOSE FORM   2 PER DAY  ORAL
     Route: 048
     Dates: start: 20060311, end: 20060312

REACTIONS (2)
  - HEPATITIS [None]
  - INFECTIOUS MONONUCLEOSIS [None]
